FAERS Safety Report 7542677-8 (Version None)
Quarter: 2011Q2

REPORT INFORMATION
  Report Type: 
  Country: None (occurrence: None)
  Receive Date: 20110613
  Receipt Date: 20110602
  Transmission Date: 20111010
  Serious: Yes (Other)
  Sender: FDA-Public Use
  Company Number: US-PFIZER INC-2011122132

PATIENT

DRUGS (1)
  1. XALATAN [Suspect]
     Dosage: 1 GTT IN EACH EYE PRIOR TO BEDTIME, UNK
     Route: 047

REACTIONS (15)
  - LACRIMATION INCREASED [None]
  - BURNING SENSATION [None]
  - EYE PAIN [None]
  - SWELLING [None]
  - EYE DISCHARGE [None]
  - EYE SWELLING [None]
  - VISION BLURRED [None]
  - FOREIGN BODY SENSATION IN EYES [None]
  - SOMNOLENCE [None]
  - PAIN [None]
  - EYE IRRITATION [None]
  - MALAISE [None]
  - VISUAL IMPAIRMENT [None]
  - SWELLING FACE [None]
  - EYELID OEDEMA [None]
